FAERS Safety Report 13390331 (Version 1)
Quarter: 2017Q1

REPORT INFORMATION
  Report Type: Spontaneous
  Country: US (occurrence: US)
  Receive Date: 20170331
  Receipt Date: 20170331
  Transmission Date: 20170429
  Serious: No
  Sender: FDA-Public Use
  Company Number: US-BAYER-2017-061445

PATIENT
  Sex: Female

DRUGS (1)
  1. MIRALAX [Suspect]
     Active Substance: POLYETHYLENE GLYCOL 3350
     Indication: COLONOSCOPY
     Dosage: 1 DF, UNK
     Route: 048

REACTIONS (5)
  - Off label use [Unknown]
  - Drug ineffective [None]
  - Expired product administered [Unknown]
  - Drug ineffective [None]
  - Therapeutic response unexpected [Unknown]

NARRATIVE: CASE EVENT DATE: 20170329
